FAERS Safety Report 6731412-9 (Version None)
Quarter: 2010Q2

REPORT INFORMATION
  Report Type: 
  Country: None (occurrence: None)
  Receive Date: 20100518
  Receipt Date: 20100518
  Transmission Date: 20101027
  Serious: Yes (Hospitalization)
  Sender: FDA-Public Use
  Company Number: None

PATIENT
  Age: 58 Year
  Sex: Male

DRUGS (1)
  1. WARFARIN [Suspect]
     Indication: ANTIPHOSPHOLIPID ANTIBODIES
     Dates: start: 20060928

REACTIONS (3)
  - ACCIDENTAL OVERDOSE [None]
  - INTERNATIONAL NORMALISED RATIO ABNORMAL [None]
  - INTERNATIONAL NORMALISED RATIO INCREASED [None]
